FAERS Safety Report 23851592 (Version 1)
Quarter: 2024Q2

REPORT INFORMATION
  Report Type: Spontaneous
  Country: EG (occurrence: EG)
  Receive Date: 20240514
  Receipt Date: 20240514
  Transmission Date: 20240716
  Serious: Yes (Hospitalization)
  Sender: FDA-Public Use
  Company Number: EG-HIKMA PHARMACEUTICALS-EG-H14001-24-03994

PATIENT
  Age: 16 Year
  Sex: Female
  Weight: 52 kg

DRUGS (3)
  1. DOXORUBICIN HYDROCHLORIDE [Suspect]
     Active Substance: DOXORUBICIN HYDROCHLORIDE
     Indication: Hodgkin^s disease
     Dosage: 35 MILLIGRAM, QOW
     Route: 041
  2. DACARBAZINE [Suspect]
     Active Substance: DACARBAZINE
     Indication: Hodgkin^s disease
     Dosage: 525 MILLIGRAM, QOW
     Route: 041
  3. VINCRISTINE SULFATE [Suspect]
     Active Substance: VINCRISTINE SULFATE
     Indication: Hodgkin^s disease
     Dosage: 1.9 MILLIGRAM, QOW
     Route: 041

REACTIONS (5)
  - Abdominal rigidity [Recovering/Resolving]
  - Headache [Recovering/Resolving]
  - Diarrhoea [Recovering/Resolving]
  - Amnesia [Recovering/Resolving]
  - Anaemia [Recovering/Resolving]

NARRATIVE: CASE EVENT DATE: 20240401
